FAERS Safety Report 6379018-8 (Version None)
Quarter: 2009Q3

REPORT INFORMATION
  Report Type: 
  Country: None (occurrence: None)
  Receive Date: 20090928
  Receipt Date: 20090918
  Transmission Date: 20100115
  Serious: Yes (Other)
  Sender: FDA-Public Use
  Company Number: PHHY2009TR40223

PATIENT
  Age: 58 Year
  Sex: Male

DRUGS (1)
  1. ZOLEDRONIC ACID [Suspect]
     Indication: MULTIPLE MYELOMA
     Route: 065

REACTIONS (13)
  - BONE LESION EXCISION [None]
  - DYSGEUSIA [None]
  - ERYTHEMA [None]
  - IMPAIRED HEALING [None]
  - OPEN WOUND [None]
  - ORAL PAIN [None]
  - OSTEONECROSIS [None]
  - PLATELET COUNT DECREASED [None]
  - PURULENT DISCHARGE [None]
  - SWELLING [None]
  - TOOTH DISORDER [None]
  - TOOTH EXTRACTION [None]
  - TOOTH SOCKET HAEMORRHAGE [None]
